FAERS Safety Report 23296932 (Version 1)
Quarter: 2023Q4

REPORT INFORMATION
  Report Type: Report from Study
  Country: US (occurrence: US)
  Receive Date: 20231214
  Receipt Date: 20231214
  Transmission Date: 20240109
  Serious: Yes (Other)
  Sender: FDA-Public Use
  Company Number: US-ABBVIE-5484487

PATIENT
  Sex: Female
  Weight: 67.131 kg

DRUGS (8)
  1. HUMIRA [Suspect]
     Active Substance: ADALIMUMAB
     Indication: Rheumatoid arthritis
     Route: 058
     Dates: start: 2004, end: 20050706
  2. HUMIRA [Suspect]
     Active Substance: ADALIMUMAB
     Route: 058
     Dates: start: 19990101, end: 19991201
  3. METHOTREXATE [Concomitant]
     Active Substance: METHOTREXATE
     Indication: Rheumatoid arthritis
     Dosage: FORM STRENGTH: 2.5 MG
  4. METHOTREXATE [Concomitant]
     Active Substance: METHOTREXATE
     Indication: Rheumatoid arthritis
     Dosage: FORM STRENGTH: 2.5 MG
  5. MECLIZINE [Concomitant]
     Active Substance: MECLIZINE HYDROCHLORIDE
     Indication: Vertigo
     Dosage: TIME INTERVAL: AS NECESSARY
  6. RALOXIFENE [Concomitant]
     Active Substance: RALOXIFENE
     Indication: Osteoporosis
  7. FOLIC ACID [Concomitant]
     Active Substance: FOLIC ACID
     Indication: Product used for unknown indication
  8. RINVOQ [Suspect]
     Active Substance: UPADACITINIB
     Indication: Product used for unknown indication
     Route: 048
     Dates: start: 2023

REACTIONS (13)
  - Musculoskeletal disorder [Recovering/Resolving]
  - Arthralgia [Recovering/Resolving]
  - Arthroscopy [Recovered/Resolved]
  - Arthralgia [Recovered/Resolved]
  - Peripheral swelling [Not Recovered/Not Resolved]
  - Joint range of motion decreased [Not Recovered/Not Resolved]
  - Pain [Recovered/Resolved]
  - Drug ineffective [Not Recovered/Not Resolved]
  - Joint range of motion decreased [Recovering/Resolving]
  - Joint range of motion decreased [Recovering/Resolving]
  - Nerve compression [Recovered/Resolved]
  - Post procedural complication [Unknown]
  - Loss of personal independence in daily activities [Unknown]

NARRATIVE: CASE EVENT DATE: 20040101
